FAERS Safety Report 18429993 (Version 1)
Quarter: 2020Q4

REPORT INFORMATION
  Report Type: Spontaneous
  Country: GB (occurrence: GB)
  Receive Date: 20201027
  Receipt Date: 20201027
  Transmission Date: 20210114
  Serious: Yes (Life-Threatening, Hospitalization)
  Sender: FDA-Public Use
  Company Number: GB-AXELLIA-003453

PATIENT
  Age: 73 Year
  Sex: Female
  Weight: 64.2 kg

DRUGS (15)
  1. DALTEPARIN [Concomitant]
     Active Substance: DALTEPARIN
  2. RIFAMPICIN [Suspect]
     Active Substance: RIFAMPIN
     Indication: ENDOCARDITIS
     Route: 048
     Dates: start: 20200926, end: 20200930
  3. DAPTOMYCIN. [Suspect]
     Active Substance: DAPTOMYCIN
     Indication: ENDOCARDITIS
     Dosage: (8MG/KG)
     Route: 042
     Dates: start: 20200925, end: 20201001
  4. DIAZEPAM. [Concomitant]
     Active Substance: DIAZEPAM
  5. GABAPENTIN. [Concomitant]
     Active Substance: GABAPENTIN
  6. BIOTENE DRY MOUTH [Concomitant]
  7. BISOPROLOL [Concomitant]
     Active Substance: BISOPROLOL
  8. LORAZEPAM. [Concomitant]
     Active Substance: LORAZEPAM
  9. TRIMETHOPRIM. [Concomitant]
     Active Substance: TRIMETHOPRIM
  10. PARACETAMOL [Concomitant]
     Active Substance: ACETAMINOPHEN
  11. MACROGOL 3350 [Concomitant]
     Active Substance: POLYETHYLENE GLYCOL 3350
  12. RIFAMPICIN [Suspect]
     Active Substance: RIFAMPIN
     Indication: ENDOCARDITIS
     Dosage: TWICE A DAY WAS ORALLY UNTIL 25/9 THEN SWITCHED TO INTRAVENOUS (IV)
     Route: 048
     Dates: start: 20200904, end: 20200925
  13. ACETYLSALICYLIC ACID [Concomitant]
     Active Substance: ASPIRIN
  14. SANDO-K [Concomitant]
  15. FLUCLOXACILLIN [Concomitant]
     Active Substance: FLUCLOXACILLIN

REACTIONS (1)
  - Myocarditis [Recovering/Resolving]

NARRATIVE: CASE EVENT DATE: 20201001
